FAERS Safety Report 7251576-0 (Version None)
Quarter: 2011Q1

REPORT INFORMATION
  Report Type: 
  Country: None (occurrence: None)
  Receive Date: 20110128
  Receipt Date: 20110117
  Transmission Date: 20110831
  Serious: No
  Sender: FDA-Public Use
  Company Number: GB-ELI_LILLY_AND_COMPANY-GB201010001455

PATIENT
  Sex: Female
  Weight: 65 kg

DRUGS (2)
  1. CALCEOS [Concomitant]
     Indication: OSTEOPOROSIS
     Dosage: 2 TABS
     Route: 048
     Dates: start: 20100101, end: 20100801
  2. FORTEO [Suspect]
     Indication: OSTEOPOROSIS
     Dosage: 20 UG, UNKNOWN
     Route: 058
     Dates: start: 20100101, end: 20100922

REACTIONS (3)
  - LIMB DISCOMFORT [None]
  - PAIN IN EXTREMITY [None]
  - BLOOD ALKALINE PHOSPHATASE INCREASED [None]
